FAERS Safety Report 11496437 (Version 1)
Quarter: 2015Q3

REPORT INFORMATION
  Report Type: Spontaneous
  Country: US (occurrence: US)
  Receive Date: 20150904
  Receipt Date: 20150904
  Transmission Date: 20151125
  Serious: Yes (Hospitalization)
  Sender: FDA-Public Use
  Company Number: US-IPCA LABORATORIES LIMITED-IPC201508-000565

PATIENT
  Age: 81 Year
  Sex: Male

DRUGS (9)
  1. HYDROCHLOROTHIAZIDE. [Suspect]
     Active Substance: HYDROCHLOROTHIAZIDE
     Indication: HYPERTENSION
  2. TENOFOVIR [Suspect]
     Active Substance: TENOFOVIR
  3. RITONAVIR. [Suspect]
     Active Substance: RITONAVIR
  4. VALSARTAN. [Concomitant]
     Active Substance: VALSARTAN
  5. TESTOSTERONE. [Concomitant]
     Active Substance: TESTOSTERONE
  6. ACYCLOVIR. [Concomitant]
     Active Substance: ACYCLOVIR
  7. DARUNAVIR [Concomitant]
     Active Substance: DARUNAVIR
  8. EMTRICITABINE [Concomitant]
     Active Substance: EMTRICITABINE
  9. ATORVASTATIN [Concomitant]
     Active Substance: ATORVASTATIN

REACTIONS (1)
  - Renal tubular necrosis [Recovered/Resolved]
